FAERS Safety Report 5200444-4 (Version None)
Quarter: 2007Q1

REPORT INFORMATION
  Report Type: 
  Country: None (occurrence: None)
  Receive Date: 20070105
  Receipt Date: 20061229
  Transmission Date: 20070707
  Serious: Yes (Hospitalization)
  Sender: FDA-Public Use
  Company Number: MX-SHR-MX-2006-040821

PATIENT
  Age: 69 Year
  Sex: Female

DRUGS (6)
  1. MAGNEVIST [Suspect]
     Indication: NUCLEAR MAGNETIC RESONANCE IMAGING
     Dosage: UNK, 1 DOSE
     Route: 042
     Dates: start: 20061214, end: 20061214
  2. ASPIRIN [Concomitant]
     Dosage: UNK
  3. CLEXANE [Concomitant]
     Dosage: 60 MG  SC  - 24 HRS
  4. KETOROLAC TROMETHAMINE [Concomitant]
     Dosage: 30 MG IV - 8HRS
     Dates: start: 20061206
  5. OMEPRAZOLE [Concomitant]
     Dosage: 20 MG IV - 12 HRS
     Dates: start: 20061206
  6. SUCRALFATE [Concomitant]
     Dosage: 1 GR VO - 8 HRS
     Dates: start: 20061206

REACTIONS (2)
  - CONVULSION [None]
  - LOSS OF CONSCIOUSNESS [None]
